FAERS Safety Report 8033393-7 (Version None)
Quarter: 2012Q1

REPORT INFORMATION
  Report Type: 
  Country: None (occurrence: None)
  Receive Date: 20120110
  Receipt Date: 20120105
  Transmission Date: 20120608
  Serious: Yes (Other)
  Sender: FDA-Public Use
  Company Number: PHHY2012CA001486

PATIENT
  Age: 44 Year
  Sex: Female

DRUGS (6)
  1. CITALOPRAM HYDROBROMIDE [Concomitant]
     Indication: AFFECTIVE DISORDER
     Dosage: 40 MG, ONCE DAILY
     Route: 048
  2. ZIPRASIDONE HYDROCHLORIDE [Suspect]
     Indication: SCHIZOAFFECTIVE DISORDER
     Dosage: 40 MG, BID FOR 1 DAY
     Route: 048
     Dates: start: 20111020
  3. TRAZODONE HCL [Concomitant]
     Indication: AFFECTIVE DISORDER
     Dosage: 50 MG, DAILY AT BEDTIME
     Route: 048
  4. ZIPRASIDONE HYDROCHLORIDE [Suspect]
     Dosage: 60 MG, BID
     Dates: start: 20111021, end: 20111022
  5. LITHIUM [Concomitant]
     Indication: AFFECTIVE DISORDER
     Dosage: 300 MG, DAILY AT BEDTIME
     Route: 048
  6. CLOZARIL [Suspect]
     Indication: PSYCHOTIC DISORDER
     Dosage: 75 MG, AT BEDTIME

REACTIONS (5)
  - TACHYPHRENIA [None]
  - ANXIETY [None]
  - PARANOIA [None]
  - PSYCHOTIC DISORDER [None]
  - WEIGHT INCREASED [None]
